FAERS Safety Report 4539200-9 (Version None)
Quarter: 2004Q4

REPORT INFORMATION
  Report Type: 
  Country: None (occurrence: None)
  Receive Date: 20041222
  Receipt Date: 20041209
  Transmission Date: 20050328
  Serious: Yes (Life-Threatening)
  Sender: FDA-Public Use
  Company Number: 2004110159

PATIENT

DRUGS (1)
  1. UNASYN [Suspect]
     Indication: ILL-DEFINED DISORDER
     Dosage: PARENTERAL
     Route: 051

REACTIONS (2)
  - ANAPHYLACTIC REACTION [None]
  - DYSPNOEA [None]
